FAERS Safety Report 15313142 (Version 1)
Quarter: 2018Q3

REPORT INFORMATION
  Report Type: Spontaneous
  Country: BR (occurrence: BR)
  Receive Date: 20180823
  Receipt Date: 20180823
  Transmission Date: 20181010
  Serious: Yes (Disabling, Other)
  Sender: FDA-Public Use
  Company Number: BR-009507513-1808BRA006843

PATIENT
  Age: 64 Year
  Sex: Female

DRUGS (6)
  1. SIMVASTATIN. [Suspect]
     Active Substance: SIMVASTATIN
     Indication: BLOOD CHOLESTEROL ABNORMAL
     Dosage: UNK
     Route: 048
  2. ENALAPRIL MALEATE. [Suspect]
     Active Substance: ENALAPRIL MALEATE
     Dosage: UNK
     Route: 048
     Dates: start: 1993
  3. LIPITOR [Concomitant]
     Active Substance: ATORVASTATIN CALCIUM
     Indication: BLOOD CHOLESTEROL ABNORMAL
     Dosage: 20 MG ONCE A DAY
     Dates: start: 2008, end: 20180626
  4. LIPITOR [Concomitant]
     Active Substance: ATORVASTATIN CALCIUM
     Dosage: 10 MG ONCE A DAY
     Dates: start: 20180628, end: 20180630
  5. HYDROCHLOROTHIAZIDE. [Concomitant]
     Active Substance: HYDROCHLOROTHIAZIDE
     Dosage: UNK
     Dates: start: 1993
  6. LIPITOR [Concomitant]
     Active Substance: ATORVASTATIN CALCIUM
     Dosage: 20 MG ONCE A DAY
     Dates: start: 20180630

REACTIONS (20)
  - Stress [Unknown]
  - Asthenia [Not Recovered/Not Resolved]
  - Dyspnoea [Recovered/Resolved]
  - Adverse drug reaction [Unknown]
  - Chest pain [Unknown]
  - Blood cholesterol decreased [Unknown]
  - Dry throat [Recovered/Resolved]
  - Pruritus [Recovered/Resolved]
  - Eye irritation [Unknown]
  - Gastritis [Not Recovered/Not Resolved]
  - Erythema [Recovered/Resolved]
  - Lip swelling [Recovered/Resolved]
  - Tendonitis [Not Recovered/Not Resolved]
  - Glaucoma [Unknown]
  - Cough [Recovered/Resolved]
  - Headache [Recovered/Resolved]
  - Ocular hyperaemia [Unknown]
  - Rotator cuff syndrome [Not Recovered/Not Resolved]
  - Hypersensitivity [Recovered/Resolved]
  - Dyspnoea [Unknown]

NARRATIVE: CASE EVENT DATE: 2010
